FAERS Safety Report 25097962 (Version 1)
Quarter: 2025Q1

REPORT INFORMATION
  Report Type: Spontaneous
  Country: US (occurrence: US)
  Receive Date: 20250320
  Receipt Date: 20250320
  Transmission Date: 20250409
  Serious: Yes (Hospitalization)
  Sender: CELLTRION
  Company Number: US-CELLTRION INC.-2025US007831

PATIENT

DRUGS (2)
  1. INFLECTRA [Suspect]
     Active Substance: INFLIXIMAB-DYYB
     Indication: Product used for unknown indication
  2. INFLECTRA [Suspect]
     Active Substance: INFLIXIMAB-DYYB

REACTIONS (3)
  - Aphasia [Unknown]
  - Disorientation [Unknown]
  - Asthenia [Unknown]

NARRATIVE: CASE EVENT DATE: 20250311
